FAERS Safety Report 7526591-X (Version None)
Quarter: 2011Q2

REPORT INFORMATION
  Report Type: 
  Country: None (occurrence: None)
  Receive Date: 20110606
  Receipt Date: 20110602
  Transmission Date: 20111010
  Serious: Yes (Death)
  Sender: FDA-Public Use
  Company Number: ES-ASTRAZENECA-2011SE34014

PATIENT
  Age: 97 Year
  Sex: Male

DRUGS (5)
  1. SEROQUEL [Suspect]
     Route: 048
     Dates: start: 20110311, end: 20110501
  2. DACORTIN [Concomitant]
     Route: 048
     Dates: end: 20110501
  3. FUROSEMIDE [Concomitant]
     Route: 048
     Dates: end: 20110501
  4. DIGOXIN [Concomitant]
     Dosage: 0.25 MG, HALF (0.125 MG) PER DAY (EXCEPT TUESDAYS AND WEDNESDAYS)
     Route: 048
     Dates: end: 20110501
  5. RANITIDINE [Concomitant]
     Route: 048
     Dates: end: 20110501

REACTIONS (1)
  - DEATH [None]
